FAERS Safety Report 4722127-7 (Version None)
Quarter: 2005Q3

REPORT INFORMATION
  Report Type: 
  Country: None (occurrence: None)
  Receive Date: 20050722
  Receipt Date: 20040730
  Transmission Date: 20060218
  Serious: No
  Sender: FDA-Public Use
  Company Number: US-GLAXOSMITHKLINE-A0520395A

PATIENT
  Age: 73 Year
  Sex: Female

DRUGS (6)
  1. AVANDIA [Suspect]
     Dosage: 8MG PER DAY
     Route: 048
     Dates: start: 20040730
  2. ZETIA [Concomitant]
  3. SYNTHROID [Concomitant]
  4. EVISTA [Concomitant]
  5. ASPIRIN [Concomitant]
  6. VITAMINS [Concomitant]

REACTIONS (1)
  - OEDEMA PERIPHERAL [None]
